FAERS Safety Report 11970431 (Version 1)
Quarter: 2016Q1

REPORT INFORMATION
  Report Type: Spontaneous
  Country: US (occurrence: None)
  Receive Date: 20160127
  Receipt Date: 20160127
  Transmission Date: 20160526
  Serious: No
  Sender: FDA-Public Use
  Company Number: None

PATIENT
  Age: 70 Year
  Sex: Male

DRUGS (1)
  1. GLEEVEC [Suspect]
     Active Substance: IMATINIB MESYLATE
     Indication: CARCINOID SYNDROME
     Dosage: 1QD
     Route: 048
     Dates: start: 201410

REACTIONS (2)
  - Vision blurred [None]
  - Eye pain [None]

NARRATIVE: CASE EVENT DATE: 20151026
